FAERS Safety Report 5298969-9 (Version None)
Quarter: 2007Q2

REPORT INFORMATION
  Report Type: 
  Country: None (occurrence: None)
  Receive Date: 20070417
  Receipt Date: 20070412
  Transmission Date: 20071010
  Serious: Yes (Hospitalization, Disabling)
  Sender: FDA-Public Use
  Company Number: 2007PK00800

PATIENT
  Age: 532 Month
  Sex: Male
  Weight: 88 kg

DRUGS (3)
  1. CRESTOR [Suspect]
     Indication: HYPERCHOLESTEROLAEMIA
     Route: 048
     Dates: start: 20060801, end: 20060901
  2. CRESTOR [Suspect]
     Route: 048
     Dates: start: 20070212, end: 20070411
  3. BEZAFIBRAT RET 400 [Concomitant]
     Indication: HYPERTRIGLYCERIDAEMIA
     Route: 048

REACTIONS (3)
  - SOFT TISSUE NECROSIS [None]
  - TENDON RUPTURE [None]
  - TENDONITIS [None]
